FAERS Safety Report 8206154-3 (Version None)
Quarter: 2012Q1

REPORT INFORMATION
  Report Type: 
  Country: None (occurrence: None)
  Receive Date: 20120313
  Receipt Date: 20120305
  Transmission Date: 20120608
  Serious: Yes (Other)
  Sender: FDA-Public Use
  Company Number: JP-CELGENEUS-087-21880-12021789

PATIENT
  Sex: Female

DRUGS (2)
  1. REVLIMID [Suspect]
     Indication: MULTIPLE MYELOMA
     Dosage: 15 MILLIGRAM
     Route: 048
     Dates: start: 20120214, end: 20120214
  2. DEXAMETHASONE ACETATE [Suspect]
     Indication: MYELOMA RECURRENCE
     Dosage: 20 MILLIGRAM
     Route: 048
     Dates: start: 20120214

REACTIONS (1)
  - ARRHYTHMIA [None]
